FAERS Safety Report 17367680 (Version 1)
Quarter: 2020Q1

REPORT INFORMATION
  Report Type: Spontaneous
  Country: US (occurrence: US)
  Receive Date: 20200203
  Receipt Date: 20200203
  Transmission Date: 20200409
  Serious: No
  Sender: FDA-Public Use
  Company Number: None

PATIENT
  Age: 63 Year
  Sex: Female
  Weight: 74.7 kg

DRUGS (6)
  1. ATENOLOL 50 MG [Concomitant]
     Active Substance: ATENOLOL
  2. CALCIUM 500MG [Concomitant]
  3. VITAMIN D 1000IU [Concomitant]
  4. ISOSORBIDE MONONITRATE ER [Suspect]
     Active Substance: ISOSORBIDE MONONITRATE
     Indication: CARDIAC DISORDER
     Dosage: ?          QUANTITY:1 TABLET(S);?
     Route: 048
     Dates: start: 20200130, end: 20200130
  5. ZOLOFT [Concomitant]
     Active Substance: SERTRALINE HYDROCHLORIDE
  6. OCUVITE EYE VITAMIN AND MINERAL SUPPLEMENT [Concomitant]

REACTIONS (7)
  - Dysstasia [None]
  - Therapy cessation [None]
  - Parosmia [None]
  - Pain [None]
  - Vomiting [None]
  - Headache [None]
  - Nausea [None]

NARRATIVE: CASE EVENT DATE: 20200130
